FAERS Safety Report 4280658-0 (Version None)
Quarter: 2004Q1

REPORT INFORMATION
  Report Type: 
  Country: None (occurrence: None)
  Receive Date: 20040127
  Receipt Date: 20040115
  Transmission Date: 20041129
  Serious: Yes (Death, Hospitalization, Other)
  Sender: FDA-Public Use
  Company Number: FR-JNJFOC-20040101302

PATIENT
  Age: 90 Year
  Sex: Female
  Weight: 70 kg

DRUGS (10)
  1. RISPERDAL [Suspect]
     Dosage: 2 MG, IN 1 DAY, ORAL
     Route: 048
     Dates: start: 20031212, end: 20031218
  2. ALDACTONE [Concomitant]
  3. LASIX [Concomitant]
  4. SERESTA (0XAZEPAM) [Concomitant]
  5. HYPERIUM (RILMENIDNE) [Concomitant]
  6. LAROXYL (AMITRIPTYLINE HYDROCHLORIDE) SOLUTON [Concomitant]
  7. ACETAMINOPHEN [Concomitant]
  8. DUPHALAC [Concomitant]
  9. FONZYLANE (BUFLOMEDIL HYDROCHLORIDE) [Concomitant]
  10. CALCIDIA (CALCIUM CARBONATE) [Concomitant]

REACTIONS (6)
  - AGITATION [None]
  - BLOOD CREATININE INCREASED [None]
  - CEREBROVASCULAR ACCIDENT [None]
  - CONVULSION [None]
  - GASTROINTESTINAL HAEMORRHAGE [None]
  - WHITE BLOOD CELL COUNT INCREASED [None]
